FAERS Safety Report 5652940-3 (Version None)
Quarter: 2008Q1

REPORT INFORMATION
  Report Type: 
  Country: None (occurrence: None)
  Receive Date: 20080306
  Receipt Date: 20080229
  Transmission Date: 20080703
  Serious: Yes (Life-Threatening)
  Sender: FDA-Public Use
  Company Number: JP-BAYER-200810219BYL

PATIENT
  Age: 81 Year
  Sex: Female

DRUGS (1)
  1. ASPIRIN [Suspect]
     Indication: MYOCARDIAL INFARCTION
     Route: 048

REACTIONS (3)
  - CAROTID ANEURYSM RUPTURE [None]
  - EPISTAXIS [None]
  - SHOCK HAEMORRHAGIC [None]
